FAERS Safety Report 8378401-9 (Version None)
Quarter: 2012Q2

REPORT INFORMATION
  Report Type: 
  Country: None (occurrence: None)
  Receive Date: 20120522
  Receipt Date: 20120515
  Transmission Date: 20120825
  Serious: Yes (Hospitalization)
  Sender: FDA-Public Use
  Company Number: JP-BAYER-2012-036618

PATIENT
  Age: 74 Year
  Sex: Male
  Weight: 72 kg

DRUGS (5)
  1. LIVACT [Concomitant]
     Indication: HEPATIC FUNCTION ABNORMAL
     Dosage: 4.15 G, TID
     Route: 048
     Dates: start: 20090923, end: 20120416
  2. GLYCYRON [AMINOACETIC ACID,DL-METHIONINE,GLYCYRRHIZIC ACID] [Concomitant]
     Indication: ANTIVIRAL PROPHYLAXIS
     Dosage: 1 DF, TID
     Route: 048
     Dates: start: 20101101, end: 20120416
  3. AMINOLEBAN EN [Concomitant]
     Indication: HEPATIC FUNCTION ABNORMAL
     Dosage: 50 G, QD
     Route: 048
     Dates: start: 20100426, end: 20120416
  4. NEXAVAR [Suspect]
     Indication: HEPATIC NEOPLASM MALIGNANT
     Dosage: DAILY DOSE 200 MG
     Route: 048
     Dates: start: 20120312, end: 20120416
  5. MAGMITT [Concomitant]
     Indication: CONSTIPATION
     Dosage: 500 MG, TID
     Route: 048
     Dates: start: 20091022, end: 20120416

REACTIONS (2)
  - EAR HAEMORRHAGE [None]
  - LIVER DISORDER [None]
